FAERS Safety Report 14268530 (Version 4)
Quarter: 2018Q3

REPORT INFORMATION
  Report Type: Spontaneous
  Country: ES (occurrence: ES)
  Receive Date: 20171211
  Receipt Date: 20180814
  Transmission Date: 20181010
  Serious: Yes (Life-Threatening, Hospitalization, Congenital Anomaly, Other)
  Sender: FDA-Public Use
  Company Number: ES-MYLANLABS-2017M1076918

PATIENT
  Age: 32 Week
  Sex: Male

DRUGS (2)
  1. AMLODIPINE [Concomitant]
     Active Substance: AMLODIPINE BESYLATE
     Indication: PRODUCT USED FOR UNKNOWN INDICATION
     Dosage: LAST DOSE ADMINISTERED 24 HOURS PRIOR TO C?SECTION
     Route: 064
  2. OLMESARTAN MEDOXOMIL. [Suspect]
     Active Substance: OLMESARTAN MEDOXOMIL
     Indication: PRODUCT USED FOR UNKNOWN INDICATION
     Dosage: LAST DOSE ADMINISTERED 24 HOURS PRIOR TO C?SECTION
     Route: 064

REACTIONS (16)
  - Pulmonary hypoplasia [Recovering/Resolving]
  - Foetal growth restriction [Unknown]
  - Anuria [Recovered/Resolved]
  - Proteinuria [Recovering/Resolving]
  - Anaemia [Unknown]
  - Foetal exposure during pregnancy [Recovered/Resolved]
  - Renal failure [Recovered/Resolved]
  - Off label use [Not Recovered/Not Resolved]
  - Hypotonia [Unknown]
  - Areflexia [Unknown]
  - Hypertension [Unknown]
  - Hypotension [Unknown]
  - Potter^s syndrome [Recovering/Resolving]
  - Oliguria [Recovering/Resolving]
  - Pneumothorax [Recovering/Resolving]
  - Oligohydramnios [Not Recovered/Not Resolved]
